FAERS Safety Report 10201116 (Version 2)
Quarter: 2014Q3

REPORT INFORMATION
  Report Type: Spontaneous
  Country: US (occurrence: US)
  Receive Date: 20140528
  Receipt Date: 20140711
  Transmission Date: 20150326
  Serious: No
  Sender: FDA-Public Use
  Company Number: US-PFIZER INC-2014143730

PATIENT
  Age: 58 Year
  Sex: Female
  Weight: 104.31 kg

DRUGS (6)
  1. NEURONTIN [Suspect]
     Active Substance: GABAPENTIN
     Indication: CONVULSION
  2. NEURONTIN [Suspect]
     Active Substance: GABAPENTIN
     Indication: INTERVERTEBRAL DISC PROTRUSION
  3. FLUOXETINE [Concomitant]
     Active Substance: FLUOXETINE\FLUOXETINE HYDROCHLORIDE
     Indication: DEPRESSION
     Dosage: 40 MG, DAILY
  4. NEURONTIN [Suspect]
     Active Substance: GABAPENTIN
     Indication: ARTHRITIS
     Dosage: 300 MG, 3X/DAY
  5. NEURONTIN [Suspect]
     Active Substance: GABAPENTIN
     Indication: MUSCULOSKELETAL DISCOMFORT
  6. CHANTIX [Concomitant]
     Active Substance: VARENICLINE TARTRATE
     Dosage: UNK
     Dates: start: 2014

REACTIONS (2)
  - Fall [Unknown]
  - Mouth injury [Unknown]
